FAERS Safety Report 20773059 (Version 1)
Quarter: 2022Q2

REPORT INFORMATION
  Report Type: Spontaneous
  Country: US (occurrence: None)
  Receive Date: 20220429
  Receipt Date: 20220429
  Transmission Date: 20220721
  Serious: Yes (Other)
  Sender: FDA-Public Use
  Company Number: None

PATIENT
  Age: 88 Year
  Sex: Female

DRUGS (1)
  1. PRALUENT [Suspect]
     Active Substance: ALIROCUMAB
     Indication: Cerebrovascular disorder
     Dosage: FREQUENCY : TWICE A DAY;?
     Route: 058
     Dates: start: 20220416, end: 20220420

REACTIONS (1)
  - Hypertension [None]

NARRATIVE: CASE EVENT DATE: 20220420
